FAERS Safety Report 5084387-5 (Version None)
Quarter: 2006Q3

REPORT INFORMATION
  Report Type: 
  Country: None (occurrence: None)
  Receive Date: 20060821
  Receipt Date: 20050309
  Transmission Date: 20061208
  Serious: Yes (Hospitalization)
  Sender: FDA-Public Use
  Company Number: AR-BRISTOL-MYERS SQUIBB COMPANY-12890703

PATIENT
  Age: 55 Year
  Sex: Male

DRUGS (5)
  1. ENTECAVIR [Suspect]
     Indication: HEPATITIS B
     Route: 048
     Dates: start: 20040109
  2. SPIRONOLACTONE [Suspect]
     Dates: start: 20050228, end: 20050307
  3. DILTIAZEM HCL [Concomitant]
     Dates: start: 20050309
  4. PROPRANOLOL [Concomitant]
     Dates: start: 20041227, end: 20050307
  5. LACTULOSE [Concomitant]
     Dates: start: 20050118

REACTIONS (1)
  - HEPATIC ENCEPHALOPATHY [None]
